FAERS Safety Report 7573749-X (Version None)
Quarter: 2011Q2

REPORT INFORMATION
  Report Type: 
  Country: None (occurrence: None)
  Receive Date: 20110627
  Receipt Date: 20110609
  Transmission Date: 20111010
  Serious: Yes (Death)
  Sender: FDA-Public Use
  Company Number: SG-ROCHE-783071

PATIENT

DRUGS (1)
  1. TAMIFLU [Suspect]
     Indication: H1N1 INFLUENZA
     Route: 065

REACTIONS (3)
  - VIRAL MUTATION IDENTIFIED [None]
  - DRUG INEFFECTIVE [None]
  - PATHOGEN RESISTANCE [None]
